FAERS Safety Report 4947727-0 (Version None)
Quarter: 2006Q1

REPORT INFORMATION
  Report Type: 
  Country: None (occurrence: None)
  Receive Date: 20060317
  Receipt Date: 20060317
  Transmission Date: 20060701
  Serious: Yes (Hospitalization, Other)
  Sender: FDA-Public Use
  Company Number: None

PATIENT
  Sex: Male
  Weight: 75.4 kg

DRUGS (12)
  1. FLUOROURACIL [Suspect]
     Indication: GASTRIC CANCER
     Dosage: 796 MG
     Dates: start: 20060224, end: 20060306
  2. CISPLATIN [Suspect]
     Dosage: 119 MG
     Dates: start: 20060224, end: 20060224
  3. EPIRUBICIN [Suspect]
     Dosage: 99 MG
     Dates: start: 20060224, end: 20060224
  4. AMBIEN [Concomitant]
  5. BENICAR [Concomitant]
  6. COLACE [Concomitant]
  7. COMPAZINE [Concomitant]
  8. DECADRON SRC [Concomitant]
  9. MIRALAX [Concomitant]
  10. MOPRPHINE SULFATE [Concomitant]
  11. SENNA TABLET [Concomitant]
  12. ZOFRAN [Concomitant]

REACTIONS (7)
  - DRUG TOXICITY [None]
  - HERPES SIMPLEX [None]
  - HYPERGLYCAEMIA [None]
  - LEUKOPENIA [None]
  - LYMPHOPENIA [None]
  - NEUTROPHIL COUNT ABNORMAL [None]
  - STOMATITIS [None]
